FAERS Safety Report 5525155-7 (Version None)
Quarter: 2007Q4

REPORT INFORMATION
  Report Type: 
  Country: None (occurrence: None)
  Receive Date: 20071126
  Receipt Date: 20071115
  Transmission Date: 20080405
  Serious: Yes (Hospitalization)
  Sender: FDA-Public Use
  Company Number: JP-JNJFOC-20071107090

PATIENT
  Age: 39 Year
  Sex: Female

DRUGS (4)
  1. REMICADE [Suspect]
     Indication: RHEUMATOID ARTHRITIS
     Dosage: INFUSIONS FOR 2 YEARS
     Route: 042
  2. LOXOPROFEN [Suspect]
     Indication: DRUG USE FOR UNKNOWN INDICATION
     Route: 048
  3. STEROID [Concomitant]
  4. ANALGESIC DRUGS [Concomitant]

REACTIONS (3)
  - ILEAL ULCER [None]
  - ILEUS [None]
  - INTESTINAL OBSTRUCTION [None]
